FAERS Safety Report 4321067-5 (Version None)
Quarter: 2004Q1

REPORT INFORMATION
  Report Type: 
  Country: None (occurrence: None)
  Receive Date: 20040312
  Receipt Date: 20031119
  Transmission Date: 20041129
  Serious: Yes (Death)
  Sender: FDA-Public Use
  Company Number: S03-USA-04790-01

PATIENT
  Age: 70 Year
  Sex: Male

DRUGS (10)
  1. LEXAPRO [Suspect]
     Indication: DEPRESSION
     Dosage: 10 MG QD PO
     Route: 048
     Dates: start: 20030929, end: 20031101
  2. ACTOS [Concomitant]
  3. GLIPIZIDE [Concomitant]
  4. ISOSORBIDE [Concomitant]
  5. LABETALOL HCL [Concomitant]
  6. NEURONTIN [Concomitant]
  7. LIPITOR [Concomitant]
  8. ASPIRIN [Concomitant]
  9. LOTENSIN HCT [Concomitant]
  10. LASIX [Concomitant]

REACTIONS (1)
  - DEATH [None]
